FAERS Safety Report 17885887 (Version 3)
Quarter: 2021Q2

REPORT INFORMATION
  Report Type: Report from Study
  Country: US (occurrence: US)
  Receive Date: 20200611
  Receipt Date: 20210503
  Transmission Date: 20210717
  Serious: Yes (Death, Hospitalization, Other)
  Sender: FDA-Public Use
  Company Number: NVSC2020US161548

PATIENT
  Sex: Female

DRUGS (1)
  1. EXJADE [Suspect]
     Active Substance: DEFERASIROX
     Indication: PRODUCT USED FOR UNKNOWN INDICATION
     Dosage: UNK
     Route: 065

REACTIONS (11)
  - Abdominal discomfort [Unknown]
  - Eye pain [Unknown]
  - Vomiting [Unknown]
  - Peripheral swelling [Unknown]
  - Haemorrhage [Unknown]
  - Asthenia [Unknown]
  - Renal disorder [Unknown]
  - Fatigue [Unknown]
  - Death [Fatal]
  - Skin discolouration [Unknown]
  - Deafness [Unknown]
